FAERS Safety Report 7318425-3 (Version None)
Quarter: 2011Q1

REPORT INFORMATION
  Report Type: 
  Country: None (occurrence: None)
  Receive Date: 20110223
  Receipt Date: 20110223
  Transmission Date: 20110831
  Serious: No
  Sender: FDA-Public Use
  Company Number: None

PATIENT
  Age: 64 Year
  Sex: Female

DRUGS (2)
  1. AVONEX [Suspect]
     Dates: end: 20090310
  2. OXAPROZIN [Suspect]
     Dates: start: 20090526, end: 20090601

REACTIONS (15)
  - ANAPHYLACTIC REACTION [None]
  - VIRAL INFECTION [None]
  - LIVER INJURY [None]
  - MYALGIA [None]
  - RASH [None]
  - BLOOD ALKALINE PHOSPHATASE INCREASED [None]
  - PYREXIA [None]
  - MALAISE [None]
  - HYPOTENSION [None]
  - ALANINE AMINOTRANSFERASE INCREASED [None]
  - HEPATITIS [None]
  - ASPARTATE AMINOTRANSFERASE INCREASED [None]
  - HEPATIC FIBROSIS [None]
  - SWELLING FACE [None]
  - EOSINOPHILIA [None]
